FAERS Safety Report 25150582 (Version 1)
Quarter: 2025Q2

REPORT INFORMATION
  Report Type: Spontaneous
  Country: US (occurrence: None)
  Receive Date: 20250401
  Receipt Date: 20250401
  Transmission Date: 20250716
  Serious: Yes (Other)
  Sender: FDA-CTU
  Company Number: None

PATIENT
  Age: 72 Year
  Sex: Female

DRUGS (1)
  1. RED BLOOD CELLS, LEUCOCYTE DEPLETED [Suspect]
     Active Substance: CITRIC ACID MONOHYDRATE\DEXTROSE\SODIUM CITRATE\SODIUM PHOSPHATE, MONOBASIC
     Indication: Transfusion

REACTIONS (2)
  - Transfusion with incompatible blood [None]
  - Antibody test positive [None]

NARRATIVE: CASE EVENT DATE: 20250223
